FAERS Safety Report 6370716-9 (Version None)
Quarter: 2009Q3

REPORT INFORMATION
  Report Type: 
  Country: None (occurrence: None)
  Receive Date: 20090923
  Receipt Date: 20070717
  Transmission Date: 20100115
  Serious: Yes (Hospitalization, Other)
  Sender: FDA-Public Use
  Company Number: US-ASTRAZENECA-2006UW25312

PATIENT
  Age: 49 Year
  Sex: Male
  Weight: 79.8 kg

DRUGS (16)
  1. SEROQUEL [Suspect]
     Indication: SCHIZOPHRENIA
     Dosage: TOTAL DAILY DOSE 20 MG
     Route: 048
  2. SEROQUEL [Suspect]
     Indication: DEPRESSION
     Dosage: TOTAL DAILY DOSE 20 MG
     Route: 048
  3. CLOZARIL [Concomitant]
     Route: 065
  4. HALDOL [Concomitant]
     Route: 065
  5. NAVANE [Concomitant]
     Route: 065
  6. RISPERDAL [Concomitant]
     Route: 065
  7. THORAZINE [Concomitant]
     Route: 065
     Dates: start: 19700101
  8. ZYPREXA [Concomitant]
     Route: 065
  9. ZOLOFT [Concomitant]
     Route: 065
     Dates: start: 20060101
  10. GLUCOTROL [Concomitant]
     Route: 048
  11. GLUCOPHAGE [Concomitant]
     Dosage: 500 MG Q AM, 1000 MG TABLET OD
     Route: 048
  12. DOCUSATE SODIUM [Concomitant]
     Route: 048
  13. DESYREL [Concomitant]
     Dosage: 50 MG HS HS
     Route: 048
  14. ARICEPT [Concomitant]
     Dosage: 5 MG EVERY EVENING AT HOUR OF SLEEP, 5 MG HS HS
     Route: 048
  15. LOTRIMIN [Concomitant]
     Dosage: 1 TX CREAM (GM) TOPICAL BID
     Route: 065
  16. NEURONTIN [Concomitant]
     Route: 048

REACTIONS (2)
  - TARDIVE DYSKINESIA [None]
  - TYPE 2 DIABETES MELLITUS [None]
